APPROVED DRUG PRODUCT: LEVOFLOXACIN IN DEXTROSE 5% IN PLASTIC CONTAINER
Active Ingredient: LEVOFLOXACIN
Strength: EQ 750MG/150ML (EQ 5MG/ML)
Dosage Form/Route: INJECTABLE;INJECTION
Application: A200674 | Product #003 | TE Code: AP
Applicant: FRESENIUS KABI USA LLC
Approved: Jun 19, 2013 | RLD: No | RS: No | Type: RX